FAERS Safety Report 6648052-2 (Version None)
Quarter: 2010Q1

REPORT INFORMATION
  Report Type: 
  Country: None (occurrence: None)
  Receive Date: 20100324
  Receipt Date: 20100312
  Transmission Date: 20100710
  Serious: No
  Sender: FDA-Public Use
  Company Number: PHHY2010JP12250

PATIENT

DRUGS (2)
  1. TASIGNA [Suspect]
     Indication: CHRONIC MYELOID LEUKAEMIA
     Dosage: 600MG
     Route: 048
  2. TASIGNA [Suspect]
     Dosage: 400MG
     Route: 048
     Dates: end: 20100312

REACTIONS (1)
  - ANGINA PECTORIS [None]
